FAERS Safety Report 7939464-5 (Version None)
Quarter: 2011Q4

REPORT INFORMATION
  Report Type: 
  Country: None (occurrence: None)
  Receive Date: 20111125
  Receipt Date: 20111114
  Transmission Date: 20120403
  Serious: Yes (Other)
  Sender: FDA-Public Use
  Company Number: US-AMGEN-USASP2011055485

PATIENT
  Age: 59 Year
  Sex: Female
  Weight: 67.574 kg

DRUGS (1)
  1. PROLIA [Suspect]
     Indication: OSTEOPOROSIS POSTMENOPAUSAL
     Dosage: 60 MG, Q6MO
     Dates: start: 20111004

REACTIONS (7)
  - PARAESTHESIA [None]
  - HYPOAESTHESIA ORAL [None]
  - HYPOAESTHESIA [None]
  - PARAESTHESIA ORAL [None]
  - BLOOD UREA INCREASED [None]
  - PAIN IN EXTREMITY [None]
  - ORAL PRURITUS [None]
